FAERS Safety Report 7609351-0 (Version None)
Quarter: 2011Q3

REPORT INFORMATION
  Report Type: 
  Country: None (occurrence: None)
  Receive Date: 20110714
  Receipt Date: 20110706
  Transmission Date: 20111222
  Serious: Yes (Other)
  Sender: FDA-Public Use
  Company Number: PHFR2011GB04123

PATIENT
  Sex: Female

DRUGS (2)
  1. ESTRADIOL [Suspect]
     Dosage: 100 UKN, UNK
     Route: 062
  2. ESTRADERM [Suspect]
     Dosage: 100 UKN, UNK
     Route: 062

REACTIONS (5)
  - VOMITING [None]
  - MUSCLE SPASMS [None]
  - HEPATIC STEATOSIS [None]
  - ACCIDENTAL EXPOSURE [None]
  - ABDOMINAL PAIN [None]
